FAERS Safety Report 4852069-8 (Version None)
Quarter: 2005Q4

REPORT INFORMATION
  Report Type: 
  Country: None (occurrence: None)
  Receive Date: 20051212
  Receipt Date: 20051212
  Transmission Date: 20060501
  Serious: Yes (Hospitalization, Other)
  Sender: FDA-Public Use
  Company Number: None

PATIENT
  Sex: Male
  Weight: 106.5953 kg

DRUGS (1)
  1. ZOCOR [Suspect]
     Indication: CARDIAC DISORDER
     Dosage: 40 MG ONCE DAILY ORAL
     Route: 048
     Dates: start: 20031101, end: 20050701

REACTIONS (8)
  - CHEST DISCOMFORT [None]
  - CHEST PAIN [None]
  - CONDITION AGGRAVATED [None]
  - DEPRESSION [None]
  - GYNAECOMASTIA [None]
  - PARAESTHESIA [None]
  - SUICIDAL IDEATION [None]
  - VISUAL DISTURBANCE [None]
